FAERS Safety Report 8278589-4 (Version None)
Quarter: 2012Q2

REPORT INFORMATION
  Report Type: 
  Country: None (occurrence: None)
  Receive Date: 20120412
  Receipt Date: 20120327
  Transmission Date: 20120825
  Serious: Yes (Other)
  Sender: FDA-Public Use
  Company Number: CL-PFIZER INC-2012082771

PATIENT
  Sex: Male

DRUGS (1)
  1. NICOTINE [Suspect]
     Route: 065

REACTIONS (1)
  - TOBACCO POISONING [None]
